FAERS Safety Report 20510168 (Version 1)
Quarter: 2022Q1

REPORT INFORMATION
  Report Type: Other
  Country: US (occurrence: None)
  Receive Date: 20220224
  Receipt Date: 20220224
  Transmission Date: 20220423
  Serious: Yes (Other)
  Sender: FDA-Public Use
  Company Number: US-ROCHE-3024515

PATIENT
  Age: 38 Year
  Sex: Female
  Weight: 90.800 kg

DRUGS (10)
  1. OCREVUS [Suspect]
     Active Substance: OCRELIZUMAB
     Indication: Relapsing-remitting multiple sclerosis
     Dosage: DATE OF TREATMENT: 27/FEB/2018, 12/APR/2018, 26/MAR/2020,07/JUL/2021, 07/JAN/2021, 08/JUL/2022, 05/J
     Route: 042
     Dates: start: 201708
  2. PROPRANOLOL HYDROCHLORIDE [Concomitant]
     Active Substance: PROPRANOLOL HYDROCHLORIDE
     Indication: Hypertension
     Route: 048
     Dates: start: 202111
  3. CLONAZEPAM [Concomitant]
     Active Substance: CLONAZEPAM
     Indication: Anxiety
     Route: 048
     Dates: start: 202111
  4. FLEXERIL [Concomitant]
     Active Substance: CYCLOBENZAPRINE HYDROCHLORIDE
     Route: 048
  5. OXCARBAZEPINE [Concomitant]
     Active Substance: OXCARBAZEPINE
     Route: 048
  6. COPAXONE [Concomitant]
     Active Substance: GLATIRAMER ACETATE
  7. AUBAGIO [Concomitant]
     Active Substance: TERIFLUNOMIDE
  8. GILENYA [Concomitant]
     Active Substance: FINGOLIMOD HYDROCHLORIDE
  9. TECFIDERA [Concomitant]
     Active Substance: DIMETHYL FUMARATE
  10. REBIF [Concomitant]
     Active Substance: INTERFERON BETA-1A

REACTIONS (7)
  - Rash [Not Recovered/Not Resolved]
  - Fall [Unknown]
  - Staphylococcal infection [Not Recovered/Not Resolved]
  - Eczema [Not Recovered/Not Resolved]
  - Dandruff [Not Recovered/Not Resolved]
  - Chapped lips [Not Recovered/Not Resolved]
  - Product dose omission issue [Unknown]

NARRATIVE: CASE EVENT DATE: 20170801
